FAERS Safety Report 5568077-8 (Version None)
Quarter: 2007Q4

REPORT INFORMATION
  Report Type: 
  Country: None (occurrence: None)
  Receive Date: 20071130
  Receipt Date: 20070914
  Transmission Date: 20080405
  Serious: No
  Sender: FDA-Public Use
  Company Number: US200708006714

PATIENT
  Age: 56 Year
  Sex: Female
  Weight: 93 kg

DRUGS (10)
  1. BYETTA [Suspect]
     Indication: TYPE 2 DIABETES MELLITUS
     Dosage: 5 UG, 2/D, SUBCUTANEOUS, 10 UG, 2/D, SUBCUTANEOUS, 10 UG, 2/D, SUBCUTANEOUS
     Route: 058
     Dates: start: 20070601, end: 20070827
  2. BYETTA [Suspect]
     Indication: TYPE 2 DIABETES MELLITUS
     Dosage: 5 UG, 2/D, SUBCUTANEOUS, 10 UG, 2/D, SUBCUTANEOUS, 10 UG, 2/D, SUBCUTANEOUS
     Route: 058
     Dates: start: 20070828, end: 20070828
  3. BYETTA [Suspect]
     Indication: TYPE 2 DIABETES MELLITUS
     Dosage: 5 UG, 2/D, SUBCUTANEOUS, 10 UG, 2/D, SUBCUTANEOUS, 10 UG, 2/D, SUBCUTANEOUS
     Route: 058
     Dates: start: 20070101
  4. EXENATIDE 5 MCG PEN, DISPOSABLE DEVICE (EXENATIDE PEN (5 MCG)) PEN,DIS [Concomitant]
  5. GLUCOTROL [Concomitant]
  6. FORTAMET (METFORMIN HYDROCHLORIDE) [Concomitant]
  7. LANTUS [Concomitant]
  8. INSULIN (INSULIN) [Concomitant]
  9. PRILOSEC [Concomitant]
  10. BISOPROLOL W/HYDROCHLOROTHIAZIDE (BISOPROLOL, HYDROCHLOROTHIAZIDE) [Concomitant]

REACTIONS (5)
  - ANXIETY [None]
  - BLOOD GLUCOSE INCREASED [None]
  - DYSPEPSIA [None]
  - GASTROINTESTINAL PAIN [None]
  - NAUSEA [None]
